FAERS Safety Report 10195321 (Version 2)
Quarter: 2014Q2

REPORT INFORMATION
  Report Type: Spontaneous
  Country: GB (occurrence: GB)
  Receive Date: 20140526
  Receipt Date: 20140612
  Transmission Date: 20141212
  Serious: Yes (Life-Threatening)
  Sender: FDA-Public Use
  Company Number: GB-JNJFOC-20140515637

PATIENT
  Sex: Female
  Weight: 80 kg

DRUGS (1)
  1. REMICADE [Suspect]
     Indication: CROHN^S DISEASE
     Dosage: 400 (UNSPECIFIED UNIT)
     Route: 042
     Dates: start: 20140509, end: 20140509

REACTIONS (3)
  - Chest discomfort [Recovered/Resolved]
  - Flushing [Recovered/Resolved]
  - Feeling hot [Recovered/Resolved]
